FAERS Safety Report 6215778-4 (Version None)
Quarter: 2009Q2

REPORT INFORMATION
  Report Type: 
  Country: None (occurrence: None)
  Receive Date: 20090603
  Receipt Date: 20090528
  Transmission Date: 20091009
  Serious: Yes (Death)
  Sender: FDA-Public Use
  Company Number: 2009SP008238

PATIENT
  Age: 13 Year
  Sex: Male
  Weight: 27 kg

DRUGS (11)
  1. NOXAFIL [Suspect]
     Indication: FUNGAL INFECTION
     Dosage: 200 MG; TID; PO
     Route: 048
     Dates: start: 20081222, end: 20090320
  2. CASPOFUNGIN [Concomitant]
     Indication: OFF LABEL USE
  3. VORICONAZOL [Concomitant]
  4. VANCOMYCINE [Concomitant]
  5. CEFEPIME [Concomitant]
  6. ACYCLOVIR [Concomitant]
  7. CLONAZEPAM [Concomitant]
  8. SERTRALINE HCL [Concomitant]
  9. LYRICA [Concomitant]
  10. CLORURO DE POTASIO [Concomitant]
  11. ONDASETRON [Concomitant]

REACTIONS (3)
  - PSEUDOMONAS INFECTION [None]
  - THERAPEUTIC RESPONSE UNEXPECTED [None]
  - TRANSPLANT [None]
